FAERS Safety Report 9648282 (Version 1)
Quarter: 2013Q4

REPORT INFORMATION
  Report Type: Spontaneous
  Country: US (occurrence: None)
  Receive Date: 20131024
  Receipt Date: 20131024
  Transmission Date: 20140711
  Serious: Yes (Disabling)
  Sender: FDA-Public Use
  Company Number: None

PATIENT
  Age: 67 Year
  Sex: Male
  Weight: 102.06 kg

DRUGS (8)
  1. PRAZOSIN [Suspect]
     Indication: POST-TRAUMATIC STRESS DISORDER
     Dosage: 1 CAPSULE MAY INCREASE TO 2 EACH NIGHT
     Route: 048
     Dates: start: 20130617, end: 20130623
  2. CRESTOR [Concomitant]
  3. CITALOPRAM [Concomitant]
  4. LEVOTHYROXINE [Concomitant]
  5. AMLODIPINE [Concomitant]
  6. ALLOPURINOL [Concomitant]
  7. ASA [Concomitant]
  8. COQ10 [Concomitant]

REACTIONS (1)
  - Blindness [None]
